FAERS Safety Report 5945929-8 (Version None)
Quarter: 2008Q4

REPORT INFORMATION
  Report Type: 
  Country: None (occurrence: None)
  Receive Date: 20081107
  Receipt Date: 20081107
  Transmission Date: 20090506
  Serious: Yes (Life-Threatening, Hospitalization, Disabling)
  Sender: FDA-Public Use
  Company Number: None

PATIENT
  Sex: Female
  Weight: 59.8748 kg

DRUGS (3)
  1. CALCIUM GLUCONATE [Suspect]
     Indication: HYPOCALCAEMIA
     Dosage: 27.9 MEQ/ 60 ML IN D5W 60 ML/HR IV
     Route: 042
     Dates: start: 20081007, end: 20081008
  2. CALCIUM GLUCONATE [Suspect]
     Indication: MUSCLE CONTRACTURE
     Dosage: 27.9 MEQ/ 60 ML IN D5W 60 ML/HR IV
     Route: 042
     Dates: start: 20081007, end: 20081008
  3. CALCIUM GLUCONATE [Suspect]
     Indication: MUSCLE SPASMS
     Dosage: 27.9 MEQ/ 60 ML IN D5W 60 ML/HR IV
     Route: 042
     Dates: start: 20081007, end: 20081008

REACTIONS (3)
  - BLOOD PHOSPHORUS INCREASED [None]
  - INCORRECT DOSE ADMINISTERED [None]
  - MEDICATION ERROR [None]
